FAERS Safety Report 10270058 (Version 1)
Quarter: 2014Q2

REPORT INFORMATION
  Report Type: Spontaneous
  Country: GB (occurrence: None)
  Receive Date: 20140625
  Receipt Date: 20140625
  Transmission Date: 20141212
  Serious: Yes (Life-Threatening)
  Sender: FDA-Public Use
  Company Number: FK201402439

PATIENT
  Age: 69 Year
  Sex: Male

DRUGS (7)
  1. EPIRUBICIN [Suspect]
     Indication: GASTRIC CANCER
     Route: 042
     Dates: start: 20130521
  2. CISPLATIN (MANUFACTURER UNKNOWN) (CISPLATIN) (CISPLATIN) [Suspect]
     Indication: GASTRIC CANCER
     Route: 042
     Dates: start: 20130521
  3. AVASTIN [Suspect]
     Indication: GASTRIC CANCER
     Route: 042
     Dates: start: 20130521
  4. XELODA (CAPECITABINE) (CAPECITABINE) [Suspect]
     Indication: GASTRIC CANCER
     Route: 048
     Dates: start: 20130521
  5. AMLODIPINE (AMLODIPINE) [Concomitant]
  6. BENDROFLUAZIDE (BENDROFLUMETHIAZIDE) [Concomitant]
  7. SIMVASTATIN (SIMVASTATIN) [Concomitant]

REACTIONS (1)
  - Hypokalaemia [None]
